FAERS Safety Report 15428641 (Version 3)
Quarter: 2018Q4

REPORT INFORMATION
  Report Type: Spontaneous
  Country: US (occurrence: US)
  Receive Date: 20180926
  Receipt Date: 20181029
  Transmission Date: 20190204
  Serious: No
  Sender: FDA-Public Use
  Company Number: US-TAKEDA-2018TUS027891

PATIENT
  Sex: Male
  Weight: 74.83 kg

DRUGS (1)
  1. ENTYVIO [Suspect]
     Active Substance: VEDOLIZUMAB
     Indication: COLITIS ULCERATIVE
     Dosage: 300 MG, UNK
     Route: 042
     Dates: start: 2018

REACTIONS (3)
  - Night sweats [Unknown]
  - Pyrexia [Not Recovered/Not Resolved]
  - Headache [Recovering/Resolving]
